FAERS Safety Report 12016129 (Version 1)
Quarter: 2016Q1

REPORT INFORMATION
  Report Type: Report from Study
  Country: US (occurrence: US)
  Receive Date: 20160205
  Receipt Date: 20160205
  Transmission Date: 20160526
  Serious: No
  Sender: FDA-Public Use
  Company Number: US-AMGEN-USASL2015111951

PATIENT
  Sex: Female

DRUGS (1)
  1. NEULASTA [Suspect]
     Active Substance: PEGFILGRASTIM
     Indication: PRODUCT USED FOR UNKNOWN INDICATION
     Dosage: 10 MG/1.0ML, UNK
     Route: 065

REACTIONS (16)
  - Back pain [Unknown]
  - Bone pain [Unknown]
  - Asthenia [Unknown]
  - Pain in jaw [Unknown]
  - Syncope [Unknown]
  - Chills [Unknown]
  - Pyrexia [Unknown]
  - Fatigue [Unknown]
  - Gait disturbance [Unknown]
  - Arthralgia [Unknown]
  - Musculoskeletal pain [Unknown]
  - Coccydynia [Unknown]
  - Nausea [Unknown]
  - Dizziness [Unknown]
  - Neck pain [Unknown]
  - Pain in extremity [Unknown]
